FAERS Safety Report 25904278 (Version 3)
Quarter: 2025Q4

REPORT INFORMATION
  Report Type: Spontaneous
  Country: JP (occurrence: JP)
  Receive Date: 20251010
  Receipt Date: 20251120
  Transmission Date: 20260118
  Serious: Yes (Hospitalization)
  Sender: ROCHE
  Company Number: JP-CHUGAI-2025031986

PATIENT
  Age: 72 Year
  Sex: Male

DRUGS (5)
  1. TECENTRIQ [Suspect]
     Active Substance: ATEZOLIZUMAB
     Indication: Hepatocellular carcinoma
     Dosage: LAST DOSE 19-JUN-2025
     Route: 042
     Dates: start: 20250509
  2. AVASTIN [Suspect]
     Active Substance: BEVACIZUMAB
     Indication: Hepatocellular carcinoma
     Dosage: LAST DOSE 11-SEP-2025
     Route: 042
     Dates: start: 20250509
  3. URSO [Concomitant]
     Active Substance: URSODIOL
     Route: 048
     Dates: start: 20250716, end: 20250716
  4. URSO [Concomitant]
     Active Substance: URSODIOL
     Route: 048
     Dates: start: 20250723, end: 20250723
  5. URSO [Concomitant]
     Active Substance: URSODIOL
     Route: 048
     Dates: start: 20250709, end: 20250709

REACTIONS (1)
  - Cholangitis [Recovered/Resolved]

NARRATIVE: CASE EVENT DATE: 20250710
